FAERS Safety Report 26211996 (Version 1)
Quarter: 2025Q4

REPORT INFORMATION
  Report Type: Report from Study
  Country: EU (occurrence: EU)
  Receive Date: 20251230
  Receipt Date: 20251230
  Transmission Date: 20260119
  Serious: Yes (Other)
  Sender: MERCK KGAA
  Company Number: EU-Merck Healthcare KGaA-2023478282

PATIENT
  Age: 7 Year
  Sex: Female
  Weight: 20 kg

DRUGS (1)
  1. SAIZEN [Suspect]
     Active Substance: SOMATROPIN
     Indication: Small for dates baby
     Dates: start: 20110610, end: 20130710

REACTIONS (3)
  - Type 2 diabetes mellitus [Recovered/Resolved]
  - Glycosuria [Recovered/Resolved]
  - Glucose tolerance test abnormal [Recovered/Resolved]

NARRATIVE: CASE EVENT DATE: 20130710
